FAERS Safety Report 9233460 (Version 1)
Quarter: 2013Q2

REPORT INFORMATION
  Report Type: Spontaneous
  Country: US (occurrence: US)
  Receive Date: 20130416
  Receipt Date: 20130416
  Transmission Date: 20140414
  Serious: No
  Sender: FDA-Public Use
  Company Number: US-MYLANLABS-2012S1010610

PATIENT
  Age: 62 Year
  Sex: Female

DRUGS (1)
  1. PAROXETINE TABLETS USP [Suspect]
     Indication: ANXIETY
     Route: 048
     Dates: start: 201205

REACTIONS (3)
  - Gastrooesophageal reflux disease [Not Recovered/Not Resolved]
  - Nausea [Not Recovered/Not Resolved]
  - Feeling abnormal [Not Recovered/Not Resolved]
